FAERS Safety Report 5815920-0 (Version None)
Quarter: 2008Q3

REPORT INFORMATION
  Report Type: 
  Country: None (occurrence: None)
  Receive Date: 20080716
  Receipt Date: 20080123
  Transmission Date: 20090109
  Serious: Yes (Hospitalization)
  Sender: FDA-Public Use
  Company Number: 2008-171139-NL

PATIENT
  Age: 58 Year
  Sex: Male
  Weight: 100 kg

DRUGS (5)
  1. REMERON [Suspect]
     Indication: BIPOLAR DISORDER
     Dates: start: 20071023, end: 20071101
  2. DEPAKENE [Concomitant]
  3. COGENTIN [Concomitant]
  4. CLONAZEPAM [Concomitant]
  5. SYNTHROID [Concomitant]

REACTIONS (1)
  - LOSS OF CONSCIOUSNESS [None]
